FAERS Safety Report 25682066 (Version 1)
Quarter: 2025Q3

REPORT INFORMATION
  Report Type: Other
  Country: EU (occurrence: EU)
  Receive Date: 20250814
  Receipt Date: 20250814
  Transmission Date: 20251020
  Serious: Yes (Other)
  Sender: Atnahs Healthcare
  Company Number: EU-ATNAHS-2025-PMNV-FR000352

PATIENT

DRUGS (3)
  1. VALIUM [Suspect]
     Active Substance: DIAZEPAM
     Indication: Toxicity to various agents
     Route: 048
     Dates: start: 20250407
  2. LAMALINE (ACETAMINOPHEN\CAFFEINE\OPIUM) [Suspect]
     Active Substance: ACETAMINOPHEN\CAFFEINE\OPIUM
     Indication: Toxicity to various agents
     Route: 048
     Dates: start: 20250407
  3. NEBIVOLOL [Suspect]
     Active Substance: NEBIVOLOL
     Indication: Toxicity to various agents
     Route: 048

REACTIONS (8)
  - Toxicity to various agents [Unknown]
  - Vomiting [Recovered/Resolved]
  - Bradycardia [Recovered/Resolved]
  - Atrioventricular block [Recovered/Resolved]
  - Electrocardiogram QT prolonged [Recovered/Resolved]
  - Somnolence [Recovered/Resolved]
  - Disorientation [Recovered/Resolved]
  - Hypothermia [Recovered/Resolved]

NARRATIVE: CASE EVENT DATE: 20250407
